FAERS Safety Report 7180572-7 (Version None)
Quarter: 2010Q4

REPORT INFORMATION
  Report Type: 
  Country: None (occurrence: None)
  Receive Date: 20101221
  Receipt Date: 20101217
  Transmission Date: 20110411
  Serious: Yes (Hospitalization, Other)
  Sender: FDA-Public Use
  Company Number: US-PFIZER INC-2010174867

PATIENT
  Sex: Male
  Weight: 79 kg

DRUGS (3)
  1. FLAGYL [Suspect]
     Indication: DIVERTICULITIS
     Dosage: 500 MG, UNK
     Route: 048
     Dates: start: 20100501, end: 20100701
  2. FLAGYL [Suspect]
     Indication: ABDOMINAL PAIN
     Dosage: UNK
     Route: 042
     Dates: start: 20100501, end: 20100701
  3. NEURONTIN [Suspect]
     Indication: NEUROPATHY PERIPHERAL
     Dosage: UNK
     Dates: start: 20100701, end: 20100801

REACTIONS (5)
  - ABDOMINAL PAIN [None]
  - CYCLIC VOMITING SYNDROME [None]
  - ERECTILE DYSFUNCTION [None]
  - LIBIDO DECREASED [None]
  - NEUROPATHY PERIPHERAL [None]
